FAERS Safety Report 24834018 (Version 1)
Quarter: 2025Q1

REPORT INFORMATION
  Report Type: Report from Study
  Country: US (occurrence: US)
  Receive Date: 20250112
  Receipt Date: 20250112
  Transmission Date: 20250408
  Serious: Yes (Other)
  Sender: JOHNSON AND JOHNSON
  Company Number: US-JNJFOC-20250115372

PATIENT
  Age: 33 Year
  Sex: Male

DRUGS (2)
  1. SPRAVATO [Suspect]
     Active Substance: ESKETAMINE
     Indication: Depression
     Route: 045
     Dates: start: 20241113, end: 20241113
  2. SPRAVATO [Suspect]
     Active Substance: ESKETAMINE
     Dosage: ^84 MG, 10 TOTAL DOSES^
     Route: 045
     Dates: start: 20241115, end: 20241226

REACTIONS (6)
  - Suicidal ideation [Recovered/Resolved]
  - Feeling abnormal [Unknown]
  - Dissociation [Recovered/Resolved]
  - Sedation [Recovering/Resolving]
  - Drug ineffective [Unknown]
  - Depressed mood [Unknown]

NARRATIVE: CASE EVENT DATE: 20240101
